FAERS Safety Report 19685406 (Version 1)
Quarter: 2021Q3

REPORT INFORMATION
  Report Type: Spontaneous
  Country: JP (occurrence: JP)
  Receive Date: 20210811
  Receipt Date: 20210811
  Transmission Date: 20211014
  Serious: Yes (Other)
  Sender: FDA-Public Use
  Company Number: JP-TAKEDA-2021TUS023932

PATIENT
  Age: 28 Year
  Sex: Female

DRUGS (5)
  1. INFLIXIMAB [Concomitant]
     Active Substance: INFLIXIMAB
  2. WARFARIN [Concomitant]
     Active Substance: WARFARIN
  3. LIALDA [Suspect]
     Active Substance: MESALAMINE
     Indication: COLITIS ULCERATIVE
     Route: 048
  4. HEPARIN [Concomitant]
     Active Substance: HEPARIN SODIUM
  5. LIALDA [Suspect]
     Active Substance: MESALAMINE
     Dosage: 2400 MILLIGRAM, QD
     Route: 048
     Dates: start: 20200803, end: 20200816

REACTIONS (3)
  - Thrombosis [Recovered/Resolved]
  - Anaemia [Recovered/Resolved]
  - Exposure during pregnancy [Unknown]

NARRATIVE: CASE EVENT DATE: 20200924
